FAERS Safety Report 9377517 (Version 1)
Quarter: 2013Q3

REPORT INFORMATION
  Report Type: Report from Study
  Country: MX (occurrence: MX)
  Receive Date: 20130701
  Receipt Date: 20130701
  Transmission Date: 20140515
  Serious: Yes (Other)
  Sender: FDA-Public Use
  Company Number: PHHY2013MX067921

PATIENT
  Age: 83 Year
  Sex: Male

DRUGS (3)
  1. DIOVAN [Suspect]
     Indication: CARDIOMEGALY
     Dosage: 2 DF(80MG), DAILY
     Route: 048
     Dates: start: 201205
  2. DIOVAN [Suspect]
     Indication: OFF LABEL USE
  3. NIFEDIPINE [Concomitant]
     Indication: HYPERTENSION
     Dosage: 2 UKN, DAILY

REACTIONS (1)
  - Prostate cancer [Not Recovered/Not Resolved]
